FAERS Safety Report 21951742 (Version 1)
Quarter: 2023Q1

REPORT INFORMATION
  Report Type: Spontaneous
  Country: RU (occurrence: RU)
  Receive Date: 20230203
  Receipt Date: 20230203
  Transmission Date: 20230418
  Serious: Yes (Life-Threatening, Hospitalization, Other)
  Sender: FDA-Public Use
  Company Number: RU-BAYER-2023P008005

PATIENT
  Age: 32 Year
  Sex: Female

DRUGS (1)
  1. ULTRAVIST [Suspect]
     Active Substance: IOPROMIDE
     Indication: Investigation
     Dosage: 100 ML, ONCE
     Route: 015
     Dates: start: 20230127, end: 20230127

REACTIONS (4)
  - Anaphylactic shock [None]
  - Loss of consciousness [None]
  - Respiratory arrest [None]
  - Incorrect route of product administration [None]

NARRATIVE: CASE EVENT DATE: 20230127
